FAERS Safety Report 8852263 (Version 3)
Quarter: 2014Q1

REPORT INFORMATION
  Report Type: Spontaneous
  Country: US (occurrence: None)
  Receive Date: 20120426
  Receipt Date: 20130107
  Transmission Date: 20141002
  Serious: No
  Sender: FDA-Public Use
  Company Number: PHEH2011US011475

PATIENT
  Age: 37 Year
  Sex: Female
  Weight: 79.4 kg

DRUGS (3)
  1. GILENYA [Suspect]
     Indication: RELAPSING-REMITTING MULTIPLE SCLEROSIS
     Route: 048
     Dates: start: 20110318
  2. ROBAXIN (METHOCARBAMOL) [Concomitant]
  3. CALCIUM WITH VITAMIN D (CALCIUM PHOSPHATE, CALCIUM SODIUM LACTATE, ERGOCALCIFEROL) [Concomitant]

REACTIONS (14)
  - Monocyte count increased [None]
  - Menstruation irregular [None]
  - Metrorrhagia [None]
  - Cardiac flutter [None]
  - Alanine aminotransferase increased [None]
  - Lymphocyte count decreased [None]
  - Tonsillar hypertrophy [None]
  - Palpitations [None]
  - White blood cell count decreased [None]
  - Vulvovaginal mycotic infection [None]
  - Bronchitis [None]
  - Oropharyngeal pain [None]
  - Malaise [None]
  - Cough [None]
